FAERS Safety Report 9661714 (Version 2)
Quarter: 2013Q4

REPORT INFORMATION
  Report Type: Spontaneous
  Country: US (occurrence: US)
  Receive Date: 20131031
  Receipt Date: 20131031
  Transmission Date: 20140711
  Serious: No
  Sender: FDA-Public Use
  Company Number: US-PURDUE-USA-2010-0049451

PATIENT
  Age: 46 Year
  Sex: Male

DRUGS (3)
  1. OXYCONTIN (NDA 22-272) [Suspect]
     Indication: NERVE INJURY
     Dosage: 80 MG, Q6H
     Dates: start: 20100908
  2. OXYCONTIN (NDA 22-272) [Suspect]
     Indication: INTERVERTEBRAL DISC PROTRUSION
     Dosage: 80 MG, BID
  3. OXYCONTIN (NDA 22-272) [Suspect]
     Indication: BACK PAIN

REACTIONS (5)
  - Pain [Unknown]
  - General physical health deterioration [Unknown]
  - Drug effect delayed [Unknown]
  - Drug ineffective [Unknown]
  - Inadequate analgesia [Not Recovered/Not Resolved]
